FAERS Safety Report 9603730 (Version 2)
Quarter: 2013Q4

REPORT INFORMATION
  Report Type: Report from Study
  Country: US (occurrence: US)
  Receive Date: 20131007
  Receipt Date: 20131007
  Transmission Date: 20140711
  Serious: Yes (Death, Hospitalization)
  Sender: FDA-Public Use
  Company Number: US-ROCHE-1242569

PATIENT
  Age: 78 Year
  Sex: Female
  Weight: 56.3 kg

DRUGS (7)
  1. AVASTIN [Suspect]
     Indication: LUNG NEOPLASM MALIGNANT
     Route: 065
  2. TARCEVA [Suspect]
     Indication: LUNG NEOPLASM MALIGNANT
     Dosage: FREQUENCY: DAILY
     Route: 048
     Dates: start: 20130619, end: 20130810
  3. TAXOL [Concomitant]
     Indication: LUNG NEOPLASM MALIGNANT
  4. CARBOPLATIN [Concomitant]
     Indication: LUNG NEOPLASM MALIGNANT
  5. LASIX [Concomitant]
     Indication: CARDIAC FAILURE CONGESTIVE
  6. LORTAB [Concomitant]
     Indication: PAIN
     Dosage: FREQUENCY: Q4-6 PRN
     Route: 048
     Dates: start: 20130619, end: 20130813
  7. FOLIC ACID [Concomitant]
     Route: 048
     Dates: start: 20121031, end: 20130813

REACTIONS (9)
  - Asthenia [Fatal]
  - Cardiac failure congestive [Unknown]
  - Dyspnoea [Unknown]
  - Constipation [Unknown]
  - Asthenia [Unknown]
  - Asthenia [Unknown]
  - Mental impairment [Not Recovered/Not Resolved]
  - Diarrhoea [Not Recovered/Not Resolved]
  - Asthenia [Not Recovered/Not Resolved]
